APPROVED DRUG PRODUCT: CALCIUM ACETATE
Active Ingredient: CALCIUM ACETATE
Strength: 667MG
Dosage Form/Route: CAPSULE;ORAL
Application: A203135 | Product #001 | TE Code: AB
Applicant: INVAGEN PHARMACEUTICALS INC
Approved: Feb 7, 2013 | RLD: No | RS: Yes | Type: RX